FAERS Safety Report 7282978-4 (Version None)
Quarter: 2011Q1

REPORT INFORMATION
  Report Type: 
  Country: None (occurrence: None)
  Receive Date: 20110209
  Receipt Date: 20110204
  Transmission Date: 20110831
  Serious: Yes (Hospitalization)
  Sender: FDA-Public Use
  Company Number: FR-ABBOTT-11P-056-0703445-00

PATIENT
  Age: 59 Year
  Sex: Female

DRUGS (8)
  1. PARKINANE [Concomitant]
     Indication: PRODUCT USED FOR UNKNOWN INDICATION
  2. INSULIN [Concomitant]
     Indication: PRODUCT USED FOR UNKNOWN INDICATION
  3. DEPAKOTE [Suspect]
     Indication: PRODUCT USED FOR UNKNOWN INDICATION
     Route: 048
     Dates: end: 20110112
  4. MOVICOL [Concomitant]
     Indication: PRODUCT USED FOR UNKNOWN INDICATION
  5. VICTOZA [Suspect]
     Indication: PRODUCT USED FOR UNKNOWN INDICATION
     Route: 048
     Dates: start: 20100820, end: 20110111
  6. ATARAX [Concomitant]
     Indication: PRODUCT USED FOR UNKNOWN INDICATION
  7. FLUPHENAZINE HCL [Concomitant]
     Indication: PRODUCT USED FOR UNKNOWN INDICATION
  8. BIPRETERAX [Concomitant]
     Indication: PRODUCT USED FOR UNKNOWN INDICATION

REACTIONS (2)
  - LIPASE INCREASED [None]
  - BLOOD AMYLASE INCREASED [None]
